FAERS Safety Report 5293528-6 (Version None)
Quarter: 2007Q2

REPORT INFORMATION
  Report Type: 
  Country: None (occurrence: None)
  Receive Date: 20070411
  Receipt Date: 20070404
  Transmission Date: 20071010
  Serious: Yes (Other)
  Sender: FDA-Public Use
  Company Number: FR-GLAXOSMITHKLINE-B0464749A

PATIENT
  Age: 74 Year
  Sex: Female

DRUGS (3)
  1. SERETIDE DISKUS [Suspect]
     Indication: ASTHMATIC CRISIS
     Dosage: 1PUFF TWICE PER DAY
     Route: 055
     Dates: start: 20070201
  2. MODOPAR [Concomitant]
     Indication: DEMENTIA ALZHEIMER'S TYPE
  3. EXELON [Concomitant]
     Indication: DEMENTIA ALZHEIMER'S TYPE

REACTIONS (1)
  - HALLUCINATION, VISUAL [None]
